FAERS Safety Report 14587997 (Version 1)
Quarter: 2018Q1

REPORT INFORMATION
  Report Type: Spontaneous
  Country: US (occurrence: US)
  Receive Date: 20180301
  Receipt Date: 20180301
  Transmission Date: 20180509
  Serious: Yes (Other)
  Sender: FDA-Public Use
  Company Number: US-EAGLE PHARMACEUTICALS, INC.-US-2018EAG000019

PATIENT

DRUGS (7)
  1. BENDEKA [Suspect]
     Active Substance: BENDAMUSTINE HYDROCHLORIDE
     Indication: NON-HODGKIN^S LYMPHOMA
     Dosage: UNK (CYCLE 1, DAYS 1 AND 2)
     Route: 042
     Dates: start: 201711
  2. BENADRYL [Concomitant]
     Active Substance: DIPHENHYDRAMINE HYDROCHLORIDE
     Indication: PREMEDICATION
     Dosage: 50 MG
     Route: 048
  3. ALOXI [Concomitant]
     Active Substance: PALONOSETRON HYDROCHLORIDE
     Indication: PREMEDICATION
     Dosage: UNK
     Route: 042
  4. BENDEKA [Suspect]
     Active Substance: BENDAMUSTINE HYDROCHLORIDE
     Dosage: UNK (CYCLE 3, DAYS 1 AND 2)
     Route: 042
  5. DECADRON [Concomitant]
     Active Substance: DEXAMETHASONE
     Indication: PREMEDICATION
     Dosage: 8 MG
     Route: 042
  6. RITUXAN [Suspect]
     Active Substance: RITUXIMAB
     Indication: NON-HODGKIN^S LYMPHOMA
     Dosage: UNK
  7. BENDEKA [Suspect]
     Active Substance: BENDAMUSTINE HYDROCHLORIDE
     Dosage: UNK (CYCLE 2, DAYS 1 AND 2)
     Route: 042

REACTIONS (11)
  - Loss of consciousness [Unknown]
  - Therapeutic response unexpected [Unknown]
  - Flushing [Unknown]
  - Dry skin [Unknown]
  - Urticaria [Unknown]
  - Thirst [Unknown]
  - Gastrooesophageal reflux disease [Unknown]
  - Rash [Recovered/Resolved]
  - Hypotension [Unknown]
  - Fluid imbalance [Unknown]
  - Blood phosphorus increased [Unknown]
